FAERS Safety Report 9806088 (Version 1)
Quarter: 2014Q1

REPORT INFORMATION
  Report Type: Spontaneous
  Country: US (occurrence: US)
  Receive Date: 20140109
  Receipt Date: 20140109
  Transmission Date: 20141002
  Serious: Yes (Death, Other)
  Sender: FDA-Public Use
  Company Number: US-UCBSA-108594

PATIENT
  Age: 59 Year
  Sex: Female

DRUGS (3)
  1. ACETAMINOPHEN/ HYDROCODONE [Suspect]
  2. ALPRAZOLAM [Suspect]
  3. LORAZEPAM [Suspect]

REACTIONS (1)
  - Drug abuse [Fatal]
